FAERS Safety Report 5711250-6 (Version None)
Quarter: 2008Q2

REPORT INFORMATION
  Report Type: 
  Country: None (occurrence: None)
  Receive Date: 20080415
  Receipt Date: 20080404
  Transmission Date: 20081010
  Serious: Yes (Other)
  Sender: FDA-Public Use
  Company Number: GXKR2008GB03336

PATIENT
  Age: 42 Year
  Sex: Female
  Weight: 60 kg

DRUGS (5)
  1. SIMVASTATIN [Suspect]
     Indication: BLOOD CHOLESTEROL INCREASED
     Dosage: 10 MG UNK ORAL
     Route: 048
     Dates: start: 20080221, end: 20080222
  2. AMOXICILLIN [Concomitant]
  3. DEPO-PROVERA SUSPENSION/INJ [Concomitant]
  4. TEMAZEPAM [Concomitant]
  5. ZOPICLONE (ZOPICLONE) [Concomitant]

REACTIONS (4)
  - MALAISE [None]
  - PARAESTHESIA [None]
  - PULSE PRESSURE INCREASED [None]
  - THROAT TIGHTNESS [None]
